FAERS Safety Report 4591591-9 (Version None)
Quarter: 2005Q1

REPORT INFORMATION
  Report Type: 
  Country: None (occurrence: None)
  Receive Date: 20050223
  Receipt Date: 20050223
  Transmission Date: 20050727
  Serious: Yes (Other)
  Sender: FDA-Public Use
  Company Number: None

PATIENT
  Sex: Female
  Weight: 58.514 kg

DRUGS (4)
  1. GEMCITABINE 100MG/ML [Suspect]
     Indication: PANCREATIC CARCINOMA
     Dosage: 1200MG/M2 DAY 1 + 15 INTRAVENOUS
     Route: 042
     Dates: start: 20040908, end: 20050209
  2. CISPLATIN [Suspect]
     Route: 042
  3. AVASTIN [Suspect]
     Indication: PANCREATIC CARCINOMA
     Dosage: 10 MG/KG DAY 1 + 15 INTRAVENOU
     Route: 042
     Dates: start: 20040908, end: 20050209
  4. COUMADIN [Concomitant]

REACTIONS (2)
  - HEADACHE [None]
  - HYPERTENSION [None]
